FAERS Safety Report 6148184-1 (Version None)
Quarter: 2009Q2

REPORT INFORMATION
  Report Type: 
  Country: None (occurrence: None)
  Receive Date: 20090408
  Receipt Date: 20090327
  Transmission Date: 20091009
  Serious: Yes (Death)
  Sender: FDA-Public Use
  Company Number: US-PFIZER INC-2009172123

PATIENT
  Sex: Male

DRUGS (7)
  1. SUTENT [Suspect]
     Indication: METASTATIC RENAL CELL CARCINOMA
     Dosage: 50 MG, 4 WKS ON 2 WKS OFF
     Dates: start: 20070701
  2. WARFARIN [Concomitant]
     Dates: start: 20070801, end: 20090101
  3. FUROSEMIDE [Concomitant]
     Dates: start: 20070801, end: 20090101
  4. PROMETHAZINE [Concomitant]
     Dates: start: 20071201, end: 20080101
  5. FAMOTIDINE [Concomitant]
     Dates: start: 20071201, end: 20080101
  6. ACETAMINOPHEN [Concomitant]
     Dates: start: 20070901, end: 20090101
  7. TAMSULOSIN [Concomitant]
     Dates: start: 20080201, end: 20090101

REACTIONS (1)
  - DEATH [None]
